FAERS Safety Report 20669836 (Version 4)
Quarter: 2022Q2

REPORT INFORMATION
  Report Type: Spontaneous
  Country: AU (occurrence: AU)
  Receive Date: 20220404
  Receipt Date: 20220506
  Transmission Date: 20220721
  Serious: Yes (Other)
  Sender: FDA-Public Use
  Company Number: AU-PFIZER INC-202200473924

PATIENT
  Age: 70 Year
  Sex: Female

DRUGS (18)
  1. APIXABAN [Suspect]
     Active Substance: APIXABAN
     Dosage: 5 MG, 2X/DAY
     Route: 065
  2. FUROSEMIDE [Suspect]
     Active Substance: FUROSEMIDE
     Dosage: 40 MG, MANE
     Route: 065
  3. FUROSEMIDE [Suspect]
     Active Substance: FUROSEMIDE
     Dosage: UNK
  4. CHOLECALCIFEROL [Suspect]
     Active Substance: CHOLECALCIFEROL
     Dosage: 25 UG, DAILY
     Route: 065
  5. FENOFIBRATE [Suspect]
     Active Substance: FENOFIBRATE
     Dosage: 96 MG, 1X/DAY (NOCTE)
     Route: 065
  6. FERROUS FUMARATE\FOLIC ACID [Suspect]
     Active Substance: FERROUS FUMARATE\FOLIC ACID
     Dosage: 1 DF, ALTERNATE DAY
  7. QUETIAPINE [Suspect]
     Active Substance: QUETIAPINE
     Dosage: 150 MG, NOCTE
     Route: 065
  8. VALPROATE [Suspect]
     Active Substance: VALPROIC ACID
     Dosage: 300 MG, 2X/DAY
     Route: 065
  9. ZOPICLONE [Suspect]
     Active Substance: ZOPICLONE
     Dosage: 3.75 MG, NOCTE
     Route: 065
  10. VITAMIN B12 [Suspect]
     Active Substance: CYANOCOBALAMIN
     Dosage: 1 DF, DAILY
  11. COBAMAMIDE [Concomitant]
     Active Substance: COBAMAMIDE
     Dosage: 1 TABLET
     Route: 065
  12. FERROUS FUMARATE/FOLIC ACID/PYRIDOXINE HYDROCHLORIDE [Concomitant]
     Dosage: UNK, 1X/DAY
     Route: 065
  13. FUROSEMIDE [Concomitant]
     Active Substance: FUROSEMIDE
     Dosage: 40 MG
     Route: 065
  14. CHOLECALCIFEROL [Concomitant]
     Active Substance: CHOLECALCIFEROL
     Dosage: 25 UG, 1X/DAY
     Route: 065
  15. FENOFIBRATE [Concomitant]
     Active Substance: FENOFIBRATE
     Dosage: 96 MG, 1X/DAY
     Route: 065
  16. QUETIAPINE [Concomitant]
     Active Substance: QUETIAPINE
     Dosage: 150 MG
     Route: 065
  17. VALPROATE [Concomitant]
     Active Substance: VALPROIC ACID
     Dosage: 300 MG, 1X/DAY
     Route: 065
  18. ZOPICLONE [Concomitant]
     Active Substance: ZOPICLONE
     Dosage: 3.75 MG
     Route: 065

REACTIONS (6)
  - Mitral valve incompetence [Unknown]
  - Pulmonary valve incompetence [Unknown]
  - Acute myocardial infarction [Unknown]
  - Troponin increased [Unknown]
  - Left atrial dilatation [Unknown]
  - Electrocardiogram abnormal [Unknown]
